FAERS Safety Report 21183657 (Version 1)
Quarter: 2022Q3

REPORT INFORMATION
  Report Type: Spontaneous
  Country: CN (occurrence: CN)
  Receive Date: 20220808
  Receipt Date: 20220808
  Transmission Date: 20221027
  Serious: Yes (Hospitalization, Other)
  Sender: FDA-Public Use
  Company Number: CN-BAXTER-2022BAX016658

PATIENT
  Age: 21 Year
  Sex: Female
  Weight: 51 kg

DRUGS (13)
  1. CYCLOPHOSPHAMIDE [Suspect]
     Active Substance: CYCLOPHOSPHAMIDE
     Indication: Burkitt^s lymphoma
     Dosage: 0.45 G, QD (DILUTED WITH 0.9% SODIUM CHLORIDE INJECTION 500 ML)
     Route: 041
     Dates: start: 20220717, end: 20220719
  2. CYCLOPHOSPHAMIDE [Suspect]
     Active Substance: CYCLOPHOSPHAMIDE
     Indication: Diffuse large B-cell lymphoma
  3. CYCLOPHOSPHAMIDE [Suspect]
     Active Substance: CYCLOPHOSPHAMIDE
     Indication: Fibroadenoma of breast
  4. SODIUM CHLORIDE [Suspect]
     Active Substance: SODIUM CHLORIDE
     Indication: Medication dilution
     Dosage: 100 ML, QD (DILUTED WITH RITUXIMAB INJECTION 100 MG, AT ONE TIME)
     Route: 041
     Dates: start: 20220716, end: 20220716
  5. SODIUM CHLORIDE [Suspect]
     Active Substance: SODIUM CHLORIDE
     Dosage: 500 ML, QD (DILUTED WITH RITUXIMAB INJECTION 500 MG, AT ONE TIME)
     Route: 041
     Dates: start: 20220716, end: 20220716
  6. SODIUM CHLORIDE [Suspect]
     Active Substance: SODIUM CHLORIDE
     Dosage: 500 ML, QD (DILUTED WITH CYCLOPHOSPHAMIDE FOR INJECTION 0.45G)
     Route: 041
     Dates: start: 20220717, end: 20220719
  7. DEXTROSE MONOHYDRATE [Suspect]
     Active Substance: DEXTROSE MONOHYDRATE
     Indication: Medication dilution
     Dosage: 250 ML, QD (DILUTED WITH PIRARUBICIN HYDROCHLORIDE FOR INJECTION 75 MG, AT ONE TIME)
     Route: 041
     Dates: start: 20220720, end: 20220720
  8. RITUXIMAB [Suspect]
     Active Substance: RITUXIMAB
     Indication: Burkitt^s lymphoma
     Dosage: 100 MG, QD (DILUTED WITH 0.9% SODIUM CHLORIDE INJECTION 100 ML, AT ONE TIME)
     Route: 041
     Dates: start: 20220716, end: 20220716
  9. RITUXIMAB [Suspect]
     Active Substance: RITUXIMAB
     Indication: Diffuse large B-cell lymphoma
     Dosage: 500 MG, QD (DILUTED WITH 0.9% SODIUM CHLORIDE INJECTION 500ML, AT ONE TIME)
     Route: 041
     Dates: start: 20220716, end: 20220716
  10. RITUXIMAB [Suspect]
     Active Substance: RITUXIMAB
     Indication: Fibroadenoma of breast
  11. PIRARUBICIN HYDROCHLORIDE [Suspect]
     Active Substance: PIRARUBICIN HYDROCHLORIDE
     Indication: Burkitt^s lymphoma
     Dosage: 75 MG, QD (DILUTED WITH 5% GLUCOSE INJECTION 250 ML, AT ONE TIME)
     Route: 041
     Dates: start: 20220720, end: 20220720
  12. PIRARUBICIN HYDROCHLORIDE [Suspect]
     Active Substance: PIRARUBICIN HYDROCHLORIDE
     Indication: Diffuse large B-cell lymphoma
  13. PIRARUBICIN HYDROCHLORIDE [Suspect]
     Active Substance: PIRARUBICIN HYDROCHLORIDE
     Indication: Fibroadenoma of breast

REACTIONS (1)
  - Myelosuppression [Unknown]

NARRATIVE: CASE EVENT DATE: 20220727
